FAERS Safety Report 5099573-8 (Version None)
Quarter: 2006Q3

REPORT INFORMATION
  Report Type: 
  Country: None (occurrence: None)
  Receive Date: 20060906
  Receipt Date: 20060822
  Transmission Date: 20061208
  Serious: Yes (Hospitalization, Other)
  Sender: FDA-Public Use
  Company Number: 2006088897

PATIENT
  Age: 7 Year
  Sex: Male
  Weight: 28.5766 kg

DRUGS (3)
  1. DILANTIN [Suspect]
     Indication: CONVULSION
     Dosage: 150 MG (50 MG, 3 IN 1 D), ORAL
     Route: 048
     Dates: start: 20001217, end: 20010101
  2. ALBUTEROL [Concomitant]
  3. PRELONE (PREDNISOLONE) [Concomitant]

REACTIONS (25)
  - ACUTE SINUSITIS [None]
  - ASTHMA [None]
  - CONJUNCTIVITIS INFECTIVE [None]
  - DRUG INEFFECTIVE [None]
  - DYSPHAGIA [None]
  - DYSURIA [None]
  - GRAND MAL CONVULSION [None]
  - HORDEOLUM [None]
  - KERATITIS [None]
  - MUCOSAL INFLAMMATION [None]
  - MYRINGITIS [None]
  - PNEUMONIA VIRAL [None]
  - RASH [None]
  - RESPIRATORY DISTRESS [None]
  - RESPIRATORY FAILURE [None]
  - RESPIRATORY SYNCYTIAL VIRUS INFECTION [None]
  - STATUS ASTHMATICUS [None]
  - STEVENS-JOHNSON SYNDROME [None]
  - SYMBLEPHARON [None]
  - TONGUE DISORDER [None]
  - TONGUE ULCERATION [None]
  - UPPER RESPIRATORY TRACT INFECTION [None]
  - URINARY TRACT INFECTION [None]
  - VIRAL INFECTION [None]
  - WHITE BLOOD CELL COUNT DECREASED [None]
